FAERS Safety Report 25711966 (Version 3)
Quarter: 2025Q4

REPORT INFORMATION
  Report Type: Report from Study
  Country: CA (occurrence: CA)
  Receive Date: 20250821
  Receipt Date: 20251223
  Transmission Date: 20260117
  Serious: Yes (Hospitalization, Other)
  Sender: PFIZER
  Company Number: CA-PFIZER INC-202500020387

PATIENT
  Age: 68 Year
  Sex: Female

DRUGS (3)
  1. IXIFI [Suspect]
     Active Substance: INFLIXIMAB-QBTX
     Indication: Crohn^s disease
     Dosage: 600MG, EVERY 6 WEEKS
     Route: 042
     Dates: start: 20250724
  2. IXIFI [Suspect]
     Active Substance: INFLIXIMAB-QBTX
     Dosage: 600 MG, EVERY 6 WEEKS
     Route: 042
     Dates: start: 20251013
  3. IXIFI [Suspect]
     Active Substance: INFLIXIMAB-QBTX
     Dosage: 550 MG, EVERY 6 WEEKS, (600 MG, EVERY 6 WEEKS)
     Route: 042
     Dates: start: 20251127

REACTIONS (7)
  - Respiratory disorder [Recovering/Resolving]
  - Spinal fracture [Unknown]
  - Pneumonia [Not Recovered/Not Resolved]
  - Bronchitis chronic [Unknown]
  - Dyspnoea exertional [Unknown]
  - Fatigue [Not Recovered/Not Resolved]
  - Off label use [Unknown]

NARRATIVE: CASE EVENT DATE: 20250101
